FAERS Safety Report 25021150 (Version 1)
Quarter: 2025Q1

REPORT INFORMATION
  Report Type: Spontaneous
  Country: RU (occurrence: RU)
  Receive Date: 20250228
  Receipt Date: 20250228
  Transmission Date: 20250408
  Serious: Yes (Death, Other)
  Sender: ALEXION PHARMACEUTICALS
  Company Number: RU-ASTRAZENECA-202502RUS022011RU

PATIENT

DRUGS (1)
  1. SEROQUEL [Suspect]
     Active Substance: QUETIAPINE FUMARATE
     Indication: Product used for unknown indication
     Route: 065

REACTIONS (7)
  - Death [Fatal]
  - Dysphagia [Unknown]
  - Weight abnormal [Unknown]
  - Increased appetite [Recovered/Resolved]
  - Weight increased [Recovered/Resolved]
  - Decreased appetite [Unknown]
  - Weight decreased [Unknown]
